FAERS Safety Report 12703844 (Version 1)
Quarter: 2016Q3

REPORT INFORMATION
  Report Type: Spontaneous
  Country: US (occurrence: US)
  Receive Date: 20160831
  Receipt Date: 20160831
  Transmission Date: 20161109
  Serious: No
  Sender: FDA-Public Use
  Company Number: US-MYLANLABS-2016M1026437

PATIENT
  Age: 52 Year
  Sex: Female

DRUGS (3)
  1. LIDOCAINE PATCH [Suspect]
     Active Substance: LIDOCAINE
     Indication: FIBROMYALGIA
  2. LIDOCAINE PATCH [Suspect]
     Active Substance: LIDOCAINE
     Indication: OFF LABEL USE
  3. LIDOCAINE PATCH [Suspect]
     Active Substance: LIDOCAINE
     Indication: BACK PAIN
     Dosage: 1-2 DF/ QD, 12 HRS ON, 12 HRS OFF
     Route: 003
     Dates: start: 20160622, end: 20160622

REACTIONS (4)
  - Drug ineffective for unapproved indication [Recovered/Resolved]
  - Application site discomfort [Recovered/Resolved]
  - Product adhesion issue [Recovered/Resolved]
  - Product quality issue [None]

NARRATIVE: CASE EVENT DATE: 20160622
